FAERS Safety Report 11315607 (Version 2)
Quarter: 2015Q3

REPORT INFORMATION
  Report Type: Spontaneous
  Country: KR (occurrence: KR)
  Receive Date: 20150728
  Receipt Date: 20150731
  Transmission Date: 20151125
  Serious: Yes (Hospitalization)
  Sender: FDA-Public Use
  Company Number: KR-AMGEN-KORCT2015075390

PATIENT
  Age: 68 Year
  Sex: Female
  Weight: 73.5 kg

DRUGS (24)
  1. DOXORUBICIN [Concomitant]
     Active Substance: DOXORUBICIN
     Dosage: 66.7 MG, UNK
     Route: 042
     Dates: start: 20150518, end: 20150518
  2. DOXORUBICIN [Concomitant]
     Active Substance: DOXORUBICIN
     Dosage: 66.38 MG, UNK
     Route: 042
     Dates: start: 20150611, end: 20150611
  3. PREDNISOLONE. [Concomitant]
     Active Substance: PREDNISOLONE
     Dosage: 60 MG, UNK
     Route: 048
     Dates: start: 20150707, end: 20150707
  4. G-LASTA [Suspect]
     Active Substance: PEGFILGRASTIM
     Indication: FEBRILE NEUTROPENIA
     Dosage: 6 MG, 1X/3WEEKS
     Route: 058
     Dates: start: 20150429
  5. RITUXIMAB [Concomitant]
     Active Substance: RITUXIMAB
     Dosage: 663.75 MG, UNK
     Route: 042
     Dates: start: 20150611, end: 20150611
  6. CYCLOPHOSPHAMIDE. [Concomitant]
     Active Substance: CYCLOPHOSPHAMIDE
     Dosage: 995.63 MG, UNK
     Route: 042
     Dates: start: 20150611, end: 20150611
  7. DOXORUBICIN [Concomitant]
     Active Substance: DOXORUBICIN
     Indication: NON-HODGKIN^S LYMPHOMA
     Dosage: 67.13 MG, UNK
     Route: 042
     Dates: start: 20150428, end: 20150428
  8. DOXORUBICIN [Concomitant]
     Active Substance: DOXORUBICIN
     Dosage: 65.63 MG, UNK
     Route: 042
     Dates: start: 20150707, end: 20150707
  9. CYCLOPHOSPHAMIDE. [Concomitant]
     Active Substance: CYCLOPHOSPHAMIDE
     Dosage: 1001 MG, UNK
     Route: 042
     Dates: start: 20150518, end: 20150518
  10. CYCLOPHOSPHAMIDE. [Concomitant]
     Active Substance: CYCLOPHOSPHAMIDE
     Dosage: 984.38 MG, UNK
     Route: 042
     Dates: start: 20150707, end: 20150707
  11. G-LASTA [Suspect]
     Active Substance: PEGFILGRASTIM
     Dosage: 6 MG, 1X/3WEEKS
     Route: 058
     Dates: start: 20150612
  12. VINCRISTINE [Concomitant]
     Active Substance: VINCRISTINE
     Dosage: 2 MG, UNK
     Route: 042
     Dates: start: 20150611, end: 20150611
  13. PREDNISOLONE. [Concomitant]
     Active Substance: PREDNISOLONE
     Indication: NON-HODGKIN^S LYMPHOMA
     Dosage: 100 MG, UNK
     Route: 048
     Dates: start: 20150428, end: 20150428
  14. G-LASTA [Suspect]
     Active Substance: PEGFILGRASTIM
     Dosage: 6 MG, 1X/3WEEKS
     Route: 058
     Dates: start: 20150708
  15. VINCRISTINE [Concomitant]
     Active Substance: VINCRISTINE
     Dosage: 2 MG, UNK
     Route: 042
     Dates: start: 20150518, end: 20150518
  16. PREDNISOLONE. [Concomitant]
     Active Substance: PREDNISOLONE
     Dosage: 60 MG, UNK
     Route: 048
     Dates: start: 20150518, end: 20150518
  17. RITUXIMAB [Concomitant]
     Active Substance: RITUXIMAB
     Indication: NON-HODGKIN^S LYMPHOMA
     Dosage: 671.25 MG, UNK
     Route: 042
     Dates: start: 20150427, end: 20150427
  18. RITUXIMAB [Concomitant]
     Active Substance: RITUXIMAB
     Dosage: 656.25 MG, UNK
     Route: 042
     Dates: start: 20150707, end: 20150707
  19. VINCRISTINE [Concomitant]
     Active Substance: VINCRISTINE
     Indication: NON-HODGKIN^S LYMPHOMA
     Dosage: 2 MG, UNK
     Route: 042
     Dates: start: 20150428, end: 20150428
  20. VINCRISTINE [Concomitant]
     Active Substance: VINCRISTINE
     Dosage: 1.98 MG, UNK
     Route: 042
     Dates: start: 20150707, end: 20150707
  21. G-LASTA [Suspect]
     Active Substance: PEGFILGRASTIM
     Dosage: 6 MG, 1X/3WEEKS
     Route: 058
     Dates: start: 20150519
  22. RITUXIMAB [Concomitant]
     Active Substance: RITUXIMAB
     Dosage: 667.5 MG, UNK
     Route: 042
     Dates: start: 20150518, end: 20150518
  23. CYCLOPHOSPHAMIDE. [Concomitant]
     Active Substance: CYCLOPHOSPHAMIDE
     Indication: NON-HODGKIN^S LYMPHOMA
     Dosage: 1006.88 MG, UNK
     Route: 042
     Dates: start: 20150427, end: 20150427
  24. PREDNISOLONE. [Concomitant]
     Active Substance: PREDNISOLONE
     Dosage: 60 MG, UNK
     Route: 048
     Dates: start: 20150611, end: 20150611

REACTIONS (1)
  - Neutropenia [Recovered/Resolved]

NARRATIVE: CASE EVENT DATE: 20150717
